FAERS Safety Report 8189799-9 (Version None)
Quarter: 2012Q1

REPORT INFORMATION
  Report Type: 
  Country: None (occurrence: None)
  Receive Date: 20120307
  Receipt Date: 20110518
  Transmission Date: 20120608
  Serious: No
  Sender: FDA-Public Use
  Company Number: US-GLAXOSMITHKLINE-A0927841A

PATIENT
  Age: 56 Year
  Sex: Male

DRUGS (7)
  1. GLUCOPHAGE [Concomitant]
  2. ACTOS [Concomitant]
  3. GLUCOTROL [Concomitant]
  4. CRESTOR [Concomitant]
  5. REQUIP XL [Suspect]
     Indication: PARKINSON'S DISEASE
     Dosage: 2MG PER DAY
     Route: 048
     Dates: start: 20110512
  6. REQUIP [Suspect]
     Indication: PARKINSON'S DISEASE
     Dosage: 8MG PER DAY
     Route: 048
     Dates: start: 20110301
  7. AZILECT [Concomitant]

REACTIONS (4)
  - HEADACHE [None]
  - HYPERHIDROSIS [None]
  - PYREXIA [None]
  - TACHYCARDIA [None]
